FAERS Safety Report 18755744 (Version 1)
Quarter: 2021Q1

REPORT INFORMATION
  Report Type: Spontaneous
  Country: US (occurrence: US)
  Receive Date: 20210115
  Receipt Date: 20210115
  Transmission Date: 20210419
  Serious: Yes (Hospitalization, Disabling, Other)
  Sender: FDA-Public Use
  Company Number: None

PATIENT
  Age: 88 Year
  Sex: Male
  Weight: 108 kg

DRUGS (5)
  1. FISH OIL [Concomitant]
     Active Substance: FISH OIL
  2. ALLIPURINOL [Concomitant]
  3. VIT [Concomitant]
  4. GABAPENTIN. [Suspect]
     Active Substance: GABAPENTIN
  5. CRESTOR [Concomitant]
     Active Substance: ROSUVASTATIN CALCIUM

REACTIONS (5)
  - Dyspnoea [None]
  - Poor quality sleep [None]
  - Syncope [None]
  - Dizziness [None]
  - Withdrawal syndrome [None]

NARRATIVE: CASE EVENT DATE: 20200501
